FAERS Safety Report 7065676-1 (Version None)
Quarter: 2010Q4

REPORT INFORMATION
  Report Type: 
  Country: None (occurrence: None)
  Receive Date: 20101027
  Receipt Date: 20101011
  Transmission Date: 20110411
  Serious: Yes (Other)
  Sender: FDA-Public Use
  Company Number: PHHY2010DO67640

PATIENT
  Age: 64 Year
  Sex: Female

DRUGS (9)
  1. ACLASTA [Suspect]
     Dosage: 5 MG
     Route: 042
  2. MYCOPHENOLATE MOFETIL [Suspect]
     Dosage: 50 MG EVERY 12 HOURS
     Dates: start: 20100525, end: 20100925
  3. ASPIRIN [Concomitant]
     Dosage: 81 MG
  4. METOPROLOL [Concomitant]
  5. AMIODARONE [Concomitant]
  6. OMEPRAZOLE [Concomitant]
  7. PREDNISONE [Concomitant]
     Indication: VASCULITIS
     Dosage: 20-50 MG ACCORDING TO VASCULITIS EVOLUTION
  8. CALCIUM PLUS [Concomitant]
  9. VITAMIN D [Concomitant]

REACTIONS (5)
  - ANAEMIA [None]
  - BONE DISORDER [None]
  - HAEMATURIA [None]
  - OEDEMA PERIPHERAL [None]
  - PAIN IN EXTREMITY [None]
